FAERS Safety Report 6074092-0 (Version None)
Quarter: 2009Q1

REPORT INFORMATION
  Report Type: 
  Country: None (occurrence: None)
  Receive Date: 20090211
  Receipt Date: 20090204
  Transmission Date: 20090719
  Serious: Yes (Other)
  Sender: FDA-Public Use
  Company Number: A0767983A

PATIENT
  Age: 51 Year
  Sex: Female
  Weight: 90 kg

DRUGS (10)
  1. COMPAZINE [Suspect]
     Indication: DRUG USE FOR UNKNOWN INDICATION
     Route: 065
  2. ZOFRAN [Suspect]
     Indication: DRUG USE FOR UNKNOWN INDICATION
     Route: 065
  3. LAMICTAL [Suspect]
     Indication: DRUG USE FOR UNKNOWN INDICATION
     Route: 065
  4. METHOTREXATE [Suspect]
     Indication: RHEUMATOID ARTHRITIS
  5. HUMIRA [Concomitant]
     Indication: RHEUMATOID ARTHRITIS
     Dates: start: 20050101
  6. PREDNISONE [Concomitant]
  7. VITAMINS [Concomitant]
  8. MORPHINE SULFATE [Concomitant]
     Indication: PAIN
  9. TIZANIDINE HYDROCHLORIDE [Concomitant]
  10. TOPIRAMATE [Concomitant]
     Indication: MIGRAINE

REACTIONS (7)
  - ALOPECIA [None]
  - DRUG HYPERSENSITIVITY [None]
  - ERYTHEMA [None]
  - NONSPECIFIC REACTION [None]
  - PRURITUS GENERALISED [None]
  - RESPIRATORY ARREST [None]
  - VOMITING [None]
